FAERS Safety Report 20900763 (Version 1)
Quarter: 2022Q2

REPORT INFORMATION
  Report Type: Spontaneous
  Country: GB (occurrence: GB)
  Receive Date: 20220601
  Receipt Date: 20220601
  Transmission Date: 20220721
  Serious: Yes (Other)
  Sender: FDA-Public Use
  Company Number: None

PATIENT
  Age: 34 Year
  Sex: Female

DRUGS (1)
  1. ESCITALOPRAM [Suspect]
     Active Substance: ESCITALOPRAM OXALATE
     Indication: Depression
     Dosage: 20MG ONCE IN THE MORNING
     Route: 065
     Dates: start: 20210901

REACTIONS (4)
  - Tunnel vision [Recovered/Resolved with Sequelae]
  - Migraine [Unknown]
  - Ocular hyperaemia [Unknown]
  - Photophobia [Unknown]

NARRATIVE: CASE EVENT DATE: 20210901
